FAERS Safety Report 18953147 (Version 2)
Quarter: 2021Q2

REPORT INFORMATION
  Report Type: Report from Study
  Country: US (occurrence: US)
  Receive Date: 20210301
  Receipt Date: 20210512
  Transmission Date: 20210717
  Serious: No
  Sender: FDA-Public Use
  Company Number: US-TAKEDA-2021TUS011672

PATIENT
  Sex: Male

DRUGS (10)
  1. SODIUM CHLORIDE. [Concomitant]
     Active Substance: SODIUM CHLORIDE
     Route: 065
  2. HUMAN NORMAL IMMUNOGLOBULIN; LIQUID [Suspect]
     Active Substance: HUMAN IMMUNOGLOBULIN G
     Dosage: 45 GRAM, EVERY 5?10 WEEKS
     Route: 042
     Dates: start: 20190301
  3. TELMISARTAN. [Concomitant]
     Active Substance: TELMISARTAN
     Route: 065
  4. HUMAN NORMAL IMMUNOGLOBULIN; LIQUID [Suspect]
     Active Substance: HUMAN IMMUNOGLOBULIN G
     Indication: CHRONIC INFLAMMATORY DEMYELINATING POLYRADICULONEUROPATHY
     Dosage: EVERY 5?10 WEEKS
     Route: 065
     Dates: start: 20190301
  5. DIPHENHYDRAMINE. [Concomitant]
     Active Substance: DIPHENHYDRAMINE
     Route: 065
  6. HEPARIN [Concomitant]
     Active Substance: HEPARIN SODIUM
     Route: 065
  7. ACETAMINOPHEN. [Concomitant]
     Active Substance: ACETAMINOPHEN
     Route: 065
  8. EPINEPHRINE. [Concomitant]
     Active Substance: EPINEPHRINE
     Route: 065
  9. DEXTROSE. [Concomitant]
     Active Substance: DEXTROSE
     Route: 065
  10. CENTRUM SILVER MEN 50+ [Concomitant]
     Active Substance: MINERALS\VITAMINS

REACTIONS (3)
  - Fatigue [Unknown]
  - Malaise [Unknown]
  - Nasopharyngitis [Unknown]
